FAERS Safety Report 20306361 (Version 2)
Quarter: 2022Q1

REPORT INFORMATION
  Report Type: Report from Study
  Country: IT (occurrence: IT)
  Receive Date: 20220106
  Receipt Date: 20220318
  Transmission Date: 20220424
  Serious: Yes (Hospitalization)
  Sender: FDA-Public Use
  Company Number: None

PATIENT
  Age: 18 Year
  Sex: Female

DRUGS (4)
  1. XANAX [Suspect]
     Active Substance: ALPRAZOLAM
     Indication: Personality disorder
     Dosage: 1 DF, 1X/DAY
     Route: 048
  2. TAVOR (LORAZEPAM) [Suspect]
     Active Substance: LORAZEPAM
     Indication: Personality disorder
     Dosage: 1 DF, 1X/DAY
     Route: 048
  3. TAVOR (LORAZEPAM) [Suspect]
     Active Substance: LORAZEPAM
     Indication: Personality disorder
     Dosage: 1 DF, 1X/DAY
     Route: 048
  4. PAROXETINE [Concomitant]
     Active Substance: PAROXETINE
     Dosage: 40 MG
     Route: 048

REACTIONS (5)
  - Bradykinesia [Recovering/Resolving]
  - Bradyphrenia [Recovering/Resolving]
  - Sedation [Recovering/Resolving]
  - Drug abuse [Recovering/Resolving]
  - Off label use [Unknown]

NARRATIVE: CASE EVENT DATE: 20211010
